FAERS Safety Report 16969403 (Version 1)
Quarter: 2019Q4

REPORT INFORMATION
  Report Type: Spontaneous
  Country: JP (occurrence: JP)
  Receive Date: 20191029
  Receipt Date: 20191029
  Transmission Date: 20200122
  Serious: Yes (Death, Other)
  Sender: FDA-Public Use
  Company Number: JP-SA-2019SA295374

PATIENT
  Age: 81 Year
  Sex: Male

DRUGS (1)
  1. JEVTANA [Suspect]
     Active Substance: CABAZITAXEL
     Indication: HORMONE-REFRACTORY PROSTATE CANCER
     Dosage: ADMINISTERED 6 DOSES
     Route: 041

REACTIONS (5)
  - Infective spondylitis [Fatal]
  - Abscess bacterial [Fatal]
  - Staphylococcal bacteraemia [Fatal]
  - Back pain [Fatal]
  - Pyrexia [Fatal]
